FAERS Safety Report 5198698-6 (Version None)
Quarter: 2007Q1

REPORT INFORMATION
  Report Type: 
  Country: None (occurrence: None)
  Receive Date: 20070104
  Receipt Date: 20061225
  Transmission Date: 20070707
  Serious: Yes (Other)
  Sender: FDA-Public Use
  Company Number: 2006AP04521

PATIENT
  Age: 16391 Day
  Sex: Female
  Weight: 50 kg

DRUGS (4)
  1. ZOMIG [Suspect]
     Indication: HEADACHE
     Route: 048
     Dates: start: 20060912
  2. DEPROMEL [Interacting]
     Indication: DEPRESSION
     Route: 048
     Dates: start: 20060601
  3. SILECE [Concomitant]
     Route: 048
     Dates: start: 20060201
  4. SHAKUYAKU-KANZO-TO [Concomitant]
     Route: 048
     Dates: start: 20060201

REACTIONS (3)
  - DRUG INTERACTION [None]
  - LOSS OF CONSCIOUSNESS [None]
  - PERIPHERAL COLDNESS [None]
